FAERS Safety Report 8228054-5 (Version None)
Quarter: 2012Q1

REPORT INFORMATION
  Report Type: 
  Country: None (occurrence: None)
  Receive Date: 20120322
  Receipt Date: 20120119
  Transmission Date: 20120608
  Serious: No
  Sender: FDA-Public Use
  Company Number: US-BRISTOL-MYERS SQUIBB COMPANY-16341984

PATIENT
  Age: 60 Year
  Sex: Male

DRUGS (2)
  1. ERBITUX [Suspect]
     Indication: SQUAMOUS CELL CARCINOMA
     Dosage: DURATN: 500MG/M2 Q 2 WEEKS FOR 10 CYCLES, ERBITUX RAN OVER 2HRS.
     Route: 042
     Dates: start: 20111115
  2. BENADRYL [Concomitant]
     Indication: PREMEDICATION
     Route: 042

REACTIONS (1)
  - EXTRAVASATION [None]
